FAERS Safety Report 19999435 (Version 1)
Quarter: 2021Q4

REPORT INFORMATION
  Report Type: Spontaneous
  Country: ES (occurrence: ES)
  Receive Date: 20211026
  Receipt Date: 20211026
  Transmission Date: 20220303
  Serious: Yes (Other)
  Sender: FDA-Public Use
  Company Number: ES-AMERICAN REGENT INC-2021002558

PATIENT
  Age: 38 Year
  Sex: Female

DRUGS (14)
  1. VENOFER [Suspect]
     Active Substance: IRON SUCROSE
     Indication: Iron deficiency anaemia
     Dosage: 200 MILLIGRAM, SINGLE (MONTHLY DOSE; 1 OF 3)
     Route: 065
  2. VENOFER [Suspect]
     Active Substance: IRON SUCROSE
     Dosage: 200 MILLIGRAM, SINGLE (MONTHLY DOSE; 2 OF 3)
     Route: 065
  3. VENOFER [Suspect]
     Active Substance: IRON SUCROSE
     Dosage: 200 MILLIGRAM, SINGLE (MONTHLY DOSE; 3 OF 3)
     Route: 065
  4. VENOFER [Suspect]
     Active Substance: IRON SUCROSE
     Dosage: 200 MILLIGRAM, SINGLE (MONTHLY DOSE; 1 OF 2)
     Route: 065
  5. VENOFER [Suspect]
     Active Substance: IRON SUCROSE
     Dosage: 200 MILLIGRAM, SINGLE (MONTHLY DOSE; 2 OF 2)
     Route: 065
  6. FERINJECT [Suspect]
     Active Substance: FERRIC CARBOXYMALTOSE
     Indication: Iron deficiency anaemia
     Dosage: 800 MILLIGRAM, SINGLE (WEEKLY DOSE; 1 OF 2)
     Route: 042
  7. FERINJECT [Suspect]
     Active Substance: FERRIC CARBOXYMALTOSE
     Dosage: 500 MILLIGRAM, SINGLE (WEEKLY DOSE; 2 OF 2)
     Route: 042
  8. FERINJECT [Suspect]
     Active Substance: FERRIC CARBOXYMALTOSE
     Dosage: 1000 MILLIGRAM, SINGLE (WEEKLY DOSE; 1 OF 2)
     Route: 042
  9. FERINJECT [Suspect]
     Active Substance: FERRIC CARBOXYMALTOSE
     Dosage: 1000 MILLIGRAM, SINGLE (WEEKLY DOSE; 2 OF 2)
     Route: 042
  10. VITAMIN D NOS [Concomitant]
     Active Substance: VITAMIN D NOS
     Indication: Vitamin D deficiency
     Dosage: UNK, WEEKLY
     Route: 030
  11. CALCIUM [Concomitant]
     Active Substance: CALCIUM
     Indication: Mineral supplementation
     Dosage: UNK, QD
     Route: 048
  12. TRACE ELEMENTS NOS [Concomitant]
     Indication: Product used for unknown indication
     Dosage: UNK, MONTHLY
     Route: 051
  13. POLYVITAMIN [VITAMINS NOS] [Concomitant]
     Indication: Product used for unknown indication
     Dosage: UNK, MONTHLY
     Route: 051
  14. CALCIUM GLUCONATE [Concomitant]
     Active Substance: CALCIUM GLUCONATE
     Indication: Product used for unknown indication
     Dosage: UNK. MONTHLY
     Route: 051

REACTIONS (1)
  - Hypophosphataemia [Recovered/Resolved]
